FAERS Safety Report 7973131-7 (Version None)
Quarter: 2011Q4

REPORT INFORMATION
  Report Type: 
  Country: None (occurrence: None)
  Receive Date: 20111213
  Receipt Date: 20111205
  Transmission Date: 20120403
  Serious: Yes (Other)
  Sender: FDA-Public Use
  Company Number: JP-ASTELLAS-2011JP009003

PATIENT
  Age: 49 Year
  Sex: Male

DRUGS (2)
  1. ANTIBIOTICS [Concomitant]
     Indication: PSEUDOMONAS INFECTION
     Route: 065
  2. FUNGUARD [Suspect]
     Route: 065

REACTIONS (1)
  - TRICHOSPORON INFECTION [None]
